FAERS Safety Report 4572149-4 (Version None)
Quarter: 2005Q1

REPORT INFORMATION
  Report Type: 
  Country: None (occurrence: None)
  Receive Date: 20050202
  Receipt Date: 20050118
  Transmission Date: 20050727
  Serious: Yes (Death, Congenital Anomaly)
  Sender: FDA-Public Use
  Company Number: 2005-BP-00741RO

PATIENT
  Sex: Female

DRUGS (4)
  1. CYCLOPHOSPHAMIDE [Suspect]
     Indication: DRUG EXPOSURE DURING PREGNANCY
     Dosage: PRENATAL EXPOSURE IN UTERO, IU
     Route: 064
  2. PREDNISONE [Suspect]
     Indication: DRUG EXPOSURE DURING PREGNANCY
     Dosage: PRENATAL EXPOSURE IN UTERO, IU
     Route: 064
  3. HYDROXYCHLOROQUINE SULFATE [Suspect]
     Indication: DRUG EXPOSURE DURING PREGNANCY
     Dosage: PRENATAL EXPOSURE IN UTERO, IU
     Route: 064
  4. ENALAPRIL MALEATE [Suspect]
     Indication: DRUG EXPOSURE DURING PREGNANCY
     Dosage: PRENATAL EXPOSURE IN UTERO, IU
     Route: 064

REACTIONS (21)
  - ANOMALY OF EXTERNAL EAR CONGENITAL [None]
  - ANOMALY OF ORBIT, CONGENITAL [None]
  - BRAIN COMPRESSION [None]
  - CAESAREAN SECTION [None]
  - CAMPTODACTYLY CONGENITAL [None]
  - CONGENITAL CENTRAL NERVOUS SYSTEM ANOMALY [None]
  - CONGENITAL CEREBRAL CYST [None]
  - CONGENITAL EYELID MALFORMATION [None]
  - CONGENITAL FOOT MALFORMATION [None]
  - CONGENITAL HAND MALFORMATION [None]
  - CONGENITAL NOSE MALFORMATION [None]
  - CORNEAL OPACITY CONGENITAL [None]
  - DRUG EXPOSURE DURING PREGNANCY [None]
  - HYDROCEPHALUS [None]
  - HYPOTELORISM OF ORBIT [None]
  - LIMB REDUCTION DEFECT [None]
  - LOW SET EARS [None]
  - NEONATAL RESPIRATORY DISTRESS SYNDROME [None]
  - PREMATURE BABY [None]
  - SPINA BIFIDA [None]
  - SYRINGOMYELIA [None]
